FAERS Safety Report 5144801-3 (Version None)
Quarter: 2006Q4

REPORT INFORMATION
  Report Type: 
  Country: None (occurrence: None)
  Receive Date: 20061103
  Receipt Date: 20061103
  Transmission Date: 20070319
  Serious: Yes (Other)
  Sender: FDA-Public Use
  Company Number: None

PATIENT
  Age: 12 Year
  Sex: Male
  Weight: 45 kg

DRUGS (1)
  1. PULMICORT [Suspect]
     Indication: ASTHMA
     Dosage: ONE INH ONCE DAILY

REACTIONS (4)
  - CANDIDIASIS [None]
  - CHROMOBLASTOMYCOSIS [None]
  - CULTURE POSITIVE [None]
  - THERAPEUTIC PRODUCT CONTAMINATION [None]
